FAERS Safety Report 10248255 (Version 1)
Quarter: 2014Q2

REPORT INFORMATION
  Report Type: Spontaneous
  Country: DE (occurrence: DE)
  Receive Date: 20140620
  Receipt Date: 20140620
  Transmission Date: 20141212
  Serious: Yes (Death, Other)
  Sender: FDA-Public Use
  Company Number: DE-ABBVIE-14K-062-1249832-00

PATIENT
  Sex: Female

DRUGS (1)
  1. ERGENYL TROPFEN [Suspect]
     Indication: EPILEPSY
     Route: 048
     Dates: start: 2014

REACTIONS (4)
  - Death [Fatal]
  - Metastases to central nervous system [Unknown]
  - Fluid retention [Unknown]
  - Convulsion [Unknown]
